FAERS Safety Report 17761796 (Version 6)
Quarter: 2021Q4

REPORT INFORMATION
  Report Type: Report from Study
  Country: US (occurrence: US)
  Receive Date: 20200508
  Receipt Date: 20211118
  Transmission Date: 20220303
  Serious: Yes (Hospitalization)
  Sender: FDA-Public Use
  Company Number: US-NOVARTISPH-NVSC2020US125227

PATIENT
  Sex: Male

DRUGS (9)
  1. TASIGNA [Suspect]
     Active Substance: NILOTINIB
     Indication: Chronic myeloid leukaemia
     Dosage: 2 DF, BID (STRENGTH 150 MG)
     Route: 065
  2. TASIGNA [Suspect]
     Active Substance: NILOTINIB
     Indication: Lymphocytic leukaemia
     Dosage: UNK (STRENGTH 150 MG)
     Route: 065
  3. TASIGNA [Suspect]
     Active Substance: NILOTINIB
     Dosage: UNK (STRENGTH 150 MG)
     Route: 065
     Dates: end: 20210329
  4. TASIGNA [Suspect]
     Active Substance: NILOTINIB
     Dosage: 150 MG, BID (STRENGTH 150 MG) (TAKE 2 TABLETS BY MOUTH TWICE A DAY ON AN EMPTY STOMACH 1 HOUR BEFORE
     Route: 048
  5. TASIGNA [Suspect]
     Active Substance: NILOTINIB
     Dosage: 50 MG, BID (STRENGTH 50 MG) (TAKE 2 CAPSULES BY MOUTH TWICE A DAY)
     Route: 048
     Dates: start: 20200109
  6. TASIGNA [Suspect]
     Active Substance: NILOTINIB
     Dosage: 2 DF, BID (STRENGTH 50 MG)
     Route: 048
     Dates: end: 20211006
  7. CITALOPRAM HYDROCHLORIDE [Concomitant]
     Active Substance: CITALOPRAM HYDROCHLORIDE
     Indication: Product used for unknown indication
     Dosage: 40 MG, BID
     Route: 048
  8. ESCITALOPRAM OXALATE [Concomitant]
     Active Substance: ESCITALOPRAM OXALATE
     Indication: Product used for unknown indication
     Dosage: UNK
     Route: 065
  9. LORAZEPAM [Concomitant]
     Active Substance: LORAZEPAM
     Indication: Product used for unknown indication
     Dosage: UNK (TAKE 2 TABLETS BY TWICE A DAY ON AN EMPTY STOMACH, 1 HOUR BEFORE OR 2 HOURS AFTER FOOD)
     Route: 065

REACTIONS (11)
  - Myocardial infarction [Unknown]
  - Onychoclasis [Unknown]
  - Myalgia [Unknown]
  - Nausea [Unknown]
  - Dry skin [Unknown]
  - Fatigue [Unknown]
  - Diarrhoea [Unknown]
  - Anxiety [Not Recovered/Not Resolved]
  - Anaemia [Unknown]
  - Condition aggravated [Unknown]
  - Product dose omission issue [Unknown]
